FAERS Safety Report 6131489-8 (Version None)
Quarter: 2009Q1

REPORT INFORMATION
  Report Type: 
  Country: None (occurrence: None)
  Receive Date: 20090325
  Receipt Date: 20080821
  Transmission Date: 20090719
  Serious: Yes (Life-Threatening)
  Sender: FDA-Public Use
  Company Number: US-BRISTOL-MYERS SQUIBB COMPANY-14310577

PATIENT
  Age: 54 Year
  Sex: Male
  Weight: 74 kg

DRUGS (7)
  1. ERBITUX [Suspect]
     Indication: HEAD AND NECK CANCER
     Dosage: 100ML VIAL
     Route: 042
  2. DEXAMETHASONE TAB [Concomitant]
     Indication: PREMEDICATION
     Route: 042
  3. DIPHENHYDRAMINE [Concomitant]
     Indication: PREMEDICATION
     Route: 042
  4. FAMOTIDINE [Concomitant]
     Indication: PREMEDICATION
     Route: 042
  5. ONDANSETRON [Concomitant]
     Indication: PREMEDICATION
     Route: 042
  6. CARBOPLATIN [Concomitant]
     Route: 042
  7. PACLITAXEL [Concomitant]
     Route: 042

REACTIONS (1)
  - INFUSION RELATED REACTION [None]
